FAERS Safety Report 15540385 (Version 1)
Quarter: 2018Q4

REPORT INFORMATION
  Report Type: Spontaneous
  Country: US (occurrence: US)
  Receive Date: 20181023
  Receipt Date: 20181023
  Transmission Date: 20190205
  Serious: No
  Sender: FDA-Public Use
  Company Number: US-PFIZER INC-2018425853

PATIENT
  Age: 62 Year
  Sex: Male

DRUGS (1)
  1. LYRICA [Suspect]
     Active Substance: PREGABALIN
     Dosage: 50 MG, 2X/DAY (50MG, 1 CAPSULE BY MOUTH TWICE DAILY)
     Route: 048

REACTIONS (3)
  - Drug intolerance [Unknown]
  - Visual impairment [Unknown]
  - Feeling abnormal [Unknown]
